FAERS Safety Report 19132310 (Version 1)
Quarter: 2021Q2

REPORT INFORMATION
  Report Type: Spontaneous
  Country: GB (occurrence: GB)
  Receive Date: 20210413
  Receipt Date: 20210413
  Transmission Date: 20210717
  Serious: Yes (Other)
  Sender: FDA-Public Use
  Company Number: GB-TEVA-2021-GB-1898721

PATIENT
  Age: 82 Year
  Sex: Male
  Weight: 82 kg

DRUGS (9)
  1. ZINERYT [Concomitant]
     Dosage: 2 DOSAGE FORMS DAILY; APPLY, UNIT DOSE : 1 DOSAGE FORMS
     Dates: start: 20200701
  2. BIMATOPROST. [Concomitant]
     Active Substance: BIMATOPROST
     Dosage: 2 DOSAGE FORMS DAILY; EACH EYE
     Dates: start: 20200701
  3. MOMETASONE [Concomitant]
     Active Substance: MOMETASONE
     Dosage: 1 DOSAGE FORMS DAILY; APPLY THINLY AT NIGHT TO...CONCENTRATE FOR SUSPENSION FOR INFUSION
     Dates: start: 20210204, end: 20210304
  4. ATORVASTATIN [Concomitant]
     Active Substance: ATORVASTATIN
     Dosage: 1 DOSAGE FORMS DAILY;
     Dates: start: 20200701
  5. DORZOLAMIDE HYDROCHLORIDE. [Concomitant]
     Active Substance: DORZOLAMIDE HYDROCHLORIDE
     Dosage: 4 DOSAGE FORMS DAILY; UNIT DOSE : 2 DOSAGE FORMS
     Dates: start: 20200701
  6. NAPROXEN. [Suspect]
     Active Substance: NAPROXEN
     Indication: GOUT
     Dosage: THEN TAKE ONE T..., UNIT DOSE : 750 MG
     Dates: start: 20210318
  7. OMEPRAZOLE. [Concomitant]
     Active Substance: OMEPRAZOLE
     Dosage: 1 DOSAGE FORMS DAILY; TO REDUCE STOMACH ACID
     Dates: start: 20210318
  8. LERCANIDIPINE HYDROCHLORIDE [Concomitant]
     Active Substance: LERCANIDIPINE HYDROCHLORIDE
     Dosage: 1 DOSAGE FORMS DAILY;
     Dates: start: 20200701
  9. METFORMIN [Concomitant]
     Active Substance: METFORMIN HYDROCHLORIDE
     Dosage: 1 DOSAGE FORMS DAILY; WITH EVENING MEAL
     Dates: start: 20200701

REACTIONS (2)
  - Gastrointestinal haemorrhage [Recovered/Resolved]
  - Discoloured vomit [Unknown]

NARRATIVE: CASE EVENT DATE: 20210329
